FAERS Safety Report 19918019 (Version 2)
Quarter: 2021Q4

REPORT INFORMATION
  Report Type: Spontaneous
  Country: US (occurrence: US)
  Receive Date: 20211005
  Receipt Date: 20211021
  Transmission Date: 20220304
  Serious: Yes (Other)
  Sender: FDA-Public Use
  Company Number: US-ROCHE-2924805

PATIENT
  Sex: Male
  Weight: 68.8 kg

DRUGS (5)
  1. ESBRIET [Suspect]
     Active Substance: PIRFENIDONE
     Indication: Product used for unknown indication
     Route: 048
  2. TYVASO [Suspect]
     Active Substance: TREPROSTINIL
     Indication: Pulmonary arterial hypertension
     Dosage: 60-120 MICROGRAM (10-20 BREATHS), 0.6 MG/ML
     Route: 055
     Dates: start: 20201110
  3. TYVASO [Suspect]
     Active Substance: TREPROSTINIL
     Dosage: 18-54 MICROGRAM
     Route: 055
     Dates: start: 202109, end: 202109
  4. TYVASO [Suspect]
     Active Substance: TREPROSTINIL
     Dosage: 18-54 MICROGRAM
     Route: 055
     Dates: start: 202109, end: 202109
  5. TYVASO [Suspect]
     Active Substance: TREPROSTINIL
     Dosage: 60-120 MICROGRAM
     Route: 055
     Dates: end: 202109

REACTIONS (4)
  - Lymphoma [Unknown]
  - Drug intolerance [Unknown]
  - Off label use [Unknown]
  - Nausea [Unknown]
